FAERS Safety Report 9645858 (Version 2)
Quarter: 2013Q4

REPORT INFORMATION
  Report Type: Spontaneous
  Country: DE (occurrence: DE)
  Receive Date: 20131025
  Receipt Date: 20131025
  Transmission Date: 20140711
  Serious: Yes (Other)
  Sender: FDA-Public Use
  Company Number: DE-B.I. PHARMACEUTICALS,INC./RIDGEFIELD-2013-BI-31315DE

PATIENT
  Age: 74 Year
  Sex: Female
  Weight: 94 kg

DRUGS (11)
  1. PRADAXA [Suspect]
     Dates: start: 201309, end: 20131002
  2. METOPROLOL [Concomitant]
  3. RAMIPRIL [Concomitant]
  4. NOVODIGAL [Concomitant]
  5. THORASEMID [Concomitant]
  6. PANTOPRAZOL [Concomitant]
  7. M-LONG [Concomitant]
     Indication: PAIN
  8. PREDNISOLONE [Concomitant]
     Indication: CHRONIC OBSTRUCTIVE PULMONARY DISEASE
  9. RISPERDON [Concomitant]
  10. UNACID [Concomitant]
     Indication: INFECTION
  11. LANTUS [Concomitant]

REACTIONS (3)
  - Renal impairment [Not Recovered/Not Resolved]
  - Haematochezia [Recovered/Resolved]
  - Haemoglobin decreased [Recovered/Resolved]
